FAERS Safety Report 23340069 (Version 3)
Quarter: 2024Q1

REPORT INFORMATION
  Report Type: Spontaneous
  Country: CA (occurrence: CA)
  Receive Date: 20231227
  Receipt Date: 20240103
  Transmission Date: 20240410
  Serious: Yes (Hospitalization, Other)
  Sender: FDA-Public Use
  Company Number: CA-HORIZON THERAPEUTICS-HZN-2023-011051

PATIENT

DRUGS (6)
  1. RAVICTI [Suspect]
     Active Substance: GLYCEROL PHENYLBUTYRATE
     Indication: Ornithine transcarbamoylase deficiency
     Dosage: FIRST DOSE
     Route: 065
     Dates: start: 20230930
  2. RAVICTI [Suspect]
     Active Substance: GLYCEROL PHENYLBUTYRATE
     Indication: Urea cycle disorder
     Dosage: RESTARTED ON A LOWER DOSE
     Dates: start: 2023
  3. RAVICTI [Suspect]
     Active Substance: GLYCEROL PHENYLBUTYRATE
     Dosage: 1.3 ML, TID
     Route: 065
     Dates: start: 2023, end: 202312
  4. RAVICTI [Suspect]
     Active Substance: GLYCEROL PHENYLBUTYRATE
     Dosage: 1.5 ML, TID
     Route: 065
     Dates: start: 20231218
  5. CITRULLINE [Concomitant]
     Active Substance: CITRULLINE
  6. AMINO ACIDS [Concomitant]
     Active Substance: AMINO ACIDS

REACTIONS (9)
  - Consciousness fluctuating [Unknown]
  - Dyskinesia [Unknown]
  - Myoclonus [Unknown]
  - Alanine aminotransferase increased [Unknown]
  - Somnolence [Unknown]
  - Pyrexia [Unknown]
  - Headache [Unknown]
  - Viral infection [Recovering/Resolving]
  - Vomiting [Recovering/Resolving]

NARRATIVE: CASE EVENT DATE: 20231001
